FAERS Safety Report 4594142-8 (Version None)
Quarter: 2005Q1

REPORT INFORMATION
  Report Type: 
  Country: None (occurrence: None)
  Receive Date: 20050301
  Receipt Date: 20050223
  Transmission Date: 20050727
  Serious: Yes (Other)
  Sender: FDA-Public Use
  Company Number: FRPFM-E-20050017

PATIENT
  Age: 72 Year
  Sex: Female

DRUGS (4)
  1. NAVELBINE [Suspect]
     Indication: NON-SMALL CELL LUNG CANCER
     Route: 042
     Dates: start: 20041104, end: 20041110
  2. SMECTA [Suspect]
     Route: 048
     Dates: start: 20041113, end: 20041123
  3. TEMESTA [Suspect]
     Indication: ANXIETY
     Route: 048
     Dates: start: 20041120
  4. TRIFLUCAN [Suspect]
     Indication: ORAL CANDIDIASIS
     Route: 048
     Dates: start: 20041113, end: 20041123

REACTIONS (1)
  - DERMATITIS BULLOUS [None]
